FAERS Safety Report 9191676 (Version 2)
Quarter: 2013Q2

REPORT INFORMATION
  Report Type: Spontaneous
  Country: US (occurrence: US)
  Receive Date: 20130326
  Receipt Date: 20130510
  Transmission Date: 20140414
  Serious: No
  Sender: FDA-Public Use
  Company Number: US-009507513-1303USA011704

PATIENT
  Age: 42 Year
  Sex: Female
  Weight: 64.4 kg

DRUGS (3)
  1. NEXPLANON [Suspect]
     Indication: CONTRACEPTION
     Dosage: UNK
     Route: 059
     Dates: start: 20130301, end: 20130307
  2. RITALIN [Concomitant]
  3. EFFEXOR [Concomitant]

REACTIONS (5)
  - Agitation [Recovered/Resolved]
  - Crying [Recovered/Resolved]
  - Irritability [Recovered/Resolved]
  - Hypertension [Unknown]
  - Headache [Recovered/Resolved]
